FAERS Safety Report 24072562 (Version 1)
Quarter: 2024Q3

REPORT INFORMATION
  Report Type: Spontaneous
  Country: US (occurrence: None)
  Receive Date: 20240710
  Receipt Date: 20240710
  Transmission Date: 20241017
  Serious: No
  Sender: Public
  Company Number: None

PATIENT
  Sex: 0

DRUGS (1)
  1. MESALAMINE [Suspect]
     Active Substance: MESALAMINE

REACTIONS (5)
  - Drug ineffective [None]
  - Diarrhoea [None]
  - Haematochezia [None]
  - Decreased appetite [None]
  - Abdominal pain upper [None]

NARRATIVE: CASE EVENT DATE: 20240709
